FAERS Safety Report 10096362 (Version 3)
Quarter: 2015Q3

REPORT INFORMATION
  Report Type: Spontaneous
  Country: US (occurrence: US)
  Receive Date: 20140422
  Receipt Date: 20150812
  Transmission Date: 20151125
  Serious: No
  Sender: FDA-Public Use
  Company Number: US-GILEAD-2012-0061668

PATIENT
  Age: 76 Year
  Sex: Male

DRUGS (5)
  1. TYVASO [Concomitant]
     Active Substance: TREPROSTINIL
  2. DIGOXIN. [Concomitant]
     Active Substance: DIGOXIN
  3. NIFEDIPINE. [Concomitant]
     Active Substance: NIFEDIPINE
  4. LETAIRIS [Suspect]
     Active Substance: AMBRISENTAN
     Indication: PRODUCT USED FOR UNKNOWN INDICATION
     Dosage: 5 MG, UNK
     Route: 048
     Dates: start: 20120131
  5. ADCIRCA [Concomitant]
     Active Substance: TADALAFIL

REACTIONS (1)
  - Dyspepsia [Unknown]
